FAERS Safety Report 5014565-2 (Version None)
Quarter: 2006Q2

REPORT INFORMATION
  Report Type: 
  Country: None (occurrence: None)
  Receive Date: 20060531
  Receipt Date: 20060512
  Transmission Date: 20061013
  Serious: Yes (Hospitalization)
  Sender: FDA-Public Use
  Company Number: PHBS2006CO07094

PATIENT
  Age: 53 Year
  Sex: Female

DRUGS (3)
  1. ZELMAC [Suspect]
     Indication: CONSTIPATION
     Dosage: 6 MG, BID
     Route: 048
     Dates: start: 20060123, end: 20060322
  2. FLUOXETINE [Concomitant]
     Dosage: 20 MG/DAY
     Dates: end: 20060322
  3. ESOMEPRAZOLE [Concomitant]
     Dosage: 40 MG/DAY
     Dates: end: 20060322

REACTIONS (2)
  - DEHYDRATION [None]
  - DIARRHOEA [None]
